FAERS Safety Report 8511016-8 (Version None)
Quarter: 2012Q3

REPORT INFORMATION
  Report Type: 
  Country: None (occurrence: None)
  Receive Date: 20120716
  Receipt Date: 20120706
  Transmission Date: 20120928
  Serious: Yes (Hospitalization, Other)
  Sender: FDA-Public Use
  Company Number: GB-JNJFOC-20120614690

PATIENT
  Sex: Male
  Weight: 69 kg

DRUGS (7)
  1. AUGMENTIN '125' [Concomitant]
     Indication: PNEUMONIA
     Route: 048
     Dates: start: 20120704, end: 20120709
  2. IBUPROFEN [Concomitant]
     Indication: ANALGESIC THERAPY
     Route: 048
     Dates: start: 20120626, end: 20120708
  3. LOPERAMIDE [Concomitant]
     Indication: FREQUENT BOWEL MOVEMENTS
     Route: 048
  4. REMICADE [Suspect]
     Indication: COLITIS ULCERATIVE
     Route: 042
     Dates: start: 20101126, end: 20101126
  5. SYMBICORT [Concomitant]
     Indication: ASTHMA
     Route: 055
  6. ACETAMINOPHEN [Concomitant]
     Indication: ANALGESIC THERAPY
     Route: 048
     Dates: start: 20120626, end: 20120704
  7. ALBUTEROL SULATE [Concomitant]
     Indication: ASTHMA
     Route: 055

REACTIONS (1)
  - PROCTOCOLECTOMY [None]
